FAERS Safety Report 8784321 (Version 1)
Quarter: 2012Q4

REPORT INFORMATION
  Report Type: Spontaneous
  Country: DK (occurrence: None)
  Receive Date: 20120829
  Receipt Date: 20120829
  Transmission Date: 20130627
  Serious: Yes (Hospitalization, Congenital Anomaly)
  Sender: FDA-Public Use
  Company Number: 2012MA010481

PATIENT
  Sex: Male
  Weight: 2.18 kg

DRUGS (7)
  1. FLUOXETINE ORAL SOLUTION USP, 20MG/5ML (ALPHARMA) [Suspect]
     Indication: DEPRESSION
     Dosage: 60 MG; QD; TRPL
     Route: 064
     Dates: start: 20100621, end: 20111004
  2. OMEPRAZOLE (OMEPRAZOLE) [Suspect]
     Dosage: 20 MG; QD; TRPL
     Route: 064
     Dates: start: 20080919
  3. SEROQUEL XL [Suspect]
     Route: 064
     Dates: start: 20110323, end: 20110910
  4. DIHYDROCODEINE [Suspect]
     Route: 064
     Dates: start: 20100315
  5. PROPRANOLOL [Suspect]
     Route: 064
     Dates: start: 20090505
  6. CITALOPRAM (CITALOPRAM) [Suspect]
     Route: 064
     Dates: start: 20111004
  7. CHLORPROMAZINE HYDROCHLORIDE [Suspect]
     Route: 064
     Dates: start: 20110922

REACTIONS (7)
  - Premature baby [None]
  - Caesarean section [None]
  - Neonatal respiratory distress syndrome [None]
  - Hypocalcaemia [None]
  - Pneumothorax [None]
  - Drug withdrawal syndrome neonatal [None]
  - Maternal drugs affecting foetus [None]
